FAERS Safety Report 20712678 (Version 6)
Quarter: 2023Q2

REPORT INFORMATION
  Report Type: Report from Study
  Country: US (occurrence: US)
  Receive Date: 20220415
  Receipt Date: 20230413
  Transmission Date: 20230721
  Serious: No
  Sender: FDA-Public Use
  Company Number: US-NOVARTISTESTPH-NVSC2022US085487

PATIENT
  Age: 15 Year
  Sex: Male

DRUGS (1)
  1. OMNITROPE [Suspect]
     Active Substance: SOMATROPIN
     Indication: Short stature
     Dosage: 0.40 ML, QD (5 MG / 1.5 ML)
     Route: 058
     Dates: start: 20220408

REACTIONS (2)
  - Injection site vesicles [Unknown]
  - Urticaria [Unknown]

NARRATIVE: CASE EVENT DATE: 20220408
